FAERS Safety Report 5206377-1 (Version None)
Quarter: 2006Q4

REPORT INFORMATION
  Report Type: 
  Country: None (occurrence: None)
  Receive Date: 20061026
  Receipt Date: 20060817
  Transmission Date: 20070319
  Serious: Yes (Other)
  Sender: FDA-Public Use
  Company Number: 2006100542

PATIENT
  Age: 56 Year
  Sex: Male
  Weight: 104.3273 kg

DRUGS (8)
  1. LYRICA [Suspect]
     Indication: BACK PAIN
     Dosage: 600 MG (200 MG, 3 IN 1 D), ORAL
     Route: 048
     Dates: start: 20050901
  2. LYRICA [Suspect]
     Indication: PAIN IN EXTREMITY
     Dosage: 600 MG (200 MG, 3 IN 1 D), ORAL
     Route: 048
     Dates: start: 20050901
  3. ALL OTHER THERAPEUTIC PRODUCTS [Concomitant]
  4. DILAUDID [Concomitant]
  5. BACLOFEN [Concomitant]
  6. CYMBALTA [Concomitant]
  7. NEURONTIN [Concomitant]
  8. METHADONE HCL [Concomitant]

REACTIONS (8)
  - BURNING SENSATION [None]
  - DISORIENTATION [None]
  - DIZZINESS [None]
  - DRUG LEVEL INCREASED [None]
  - EYE MOVEMENT DISORDER [None]
  - MEMORY IMPAIRMENT [None]
  - SOMNOLENCE [None]
  - SUICIDE ATTEMPT [None]
